FAERS Safety Report 9468694 (Version 2)
Quarter: 2013Q4

REPORT INFORMATION
  Report Type: Spontaneous
  Country: US (occurrence: None)
  Receive Date: 20130814
  Receipt Date: 20131211
  Transmission Date: 20140711
  Serious: Yes (Hospitalization, Other)
  Sender: FDA-Public Use
  Company Number: 2012-001930

PATIENT
  Age: 71 Year
  Sex: Female
  Weight: 73.6 kg

DRUGS (8)
  1. ACTONEL (RISEDRONATE SODIUM) TABLET [Suspect]
     Indication: OSTEOPOROSIS
     Dates: end: 200309
  2. FOSAMAX (ALENDRONATE SODIUM) [Suspect]
     Indication: OSTEOPOROSIS
     Route: 048
     Dates: end: 200309
  3. ALENDRONATE SODIUM (ALENDRONATE SODIUM) (ALENDRONATE SODIUM) [Suspect]
     Indication: OSTEOPOROSIS
     Route: 048
     Dates: end: 201005
  4. BONIVA (IBANDRONATE SODIUM) [Suspect]
     Indication: OSTEOPOROSIS
     Route: 048
  5. LOTREL (AMLODIPINE BESILATE, BENAZEPRIL HYDROCHLORIDE) [Concomitant]
  6. ZYRTEC (CETIRIZINE HYDROCHLORIDE) [Concomitant]
  7. NAPROXEN (NAPROXEN) [Concomitant]
  8. CLOBETASOL (CLOBETASOL) [Concomitant]

REACTIONS (11)
  - Femur fracture [None]
  - Arthralgia [None]
  - Fracture displacement [None]
  - Pathological fracture [None]
  - Fall [None]
  - Fracture nonunion [None]
  - Pain [None]
  - Bone disorder [None]
  - Stress fracture [None]
  - Low turnover osteopathy [None]
  - Femur fracture [None]
